FAERS Safety Report 17679639 (Version 1)
Quarter: 2020Q2

REPORT INFORMATION
  Report Type: Spontaneous
  Country: ES (occurrence: ES)
  Receive Date: 20200417
  Receipt Date: 20200417
  Transmission Date: 20200714
  Serious: Yes (Other)
  Sender: FDA-Public Use
  Company Number: ES-009507513-2004ESP002625

PATIENT
  Age: 60 Year
  Sex: Male

DRUGS (2)
  1. ABILIFY [Suspect]
     Active Substance: ARIPIPRAZOLE
     Dosage: DECIDED TO INCREASE THE DOSE TO 15MG INTERR ON 28AUG10AGAIN INCREASED DOSE FROM 15MG TO 30MG
     Route: 065
     Dates: start: 20100819, end: 20100828
  2. SINEMET PLUS 25/100 MG COMPRIMIDOS [Suspect]
     Active Substance: CARBIDOPA\LEVODOPA
     Dosage: DECIDED TO INCREASE THE DOSE TO 15MG INTERR ON 28AUG10AGAIN INCREASED DOSE FROM 15MG TO 30MG
     Route: 065
     Dates: start: 20100819

REACTIONS (4)
  - Delirium [Recovered/Resolved]
  - Delusion [Recovered/Resolved]
  - Aggression [Recovered/Resolved]
  - Soliloquy [Recovered/Resolved]

NARRATIVE: CASE EVENT DATE: 20100824
